FAERS Safety Report 24346849 (Version 2)
Quarter: 2024Q4

REPORT INFORMATION
  Report Type: Spontaneous
  Country: US (occurrence: US)
  Receive Date: 20240921
  Receipt Date: 20241001
  Transmission Date: 20250115
  Serious: No
  Sender: IPSEN
  Company Number: US-IPSEN Group, Research and Development-2024-18261

PATIENT
  Age: 67 Year
  Sex: Male
  Weight: 160 kg

DRUGS (4)
  1. DYSPORT [Suspect]
     Active Substance: ABOBOTULINUMTOXINA
     Indication: Skin wrinkling
     Dosage: GLABELLA:10 U, LATERAL CANTHAL LINES:10 U, FOREHEAD:6 U
     Route: 030
     Dates: start: 20240818, end: 20240818
  2. DYSPORT [Suspect]
     Active Substance: ABOBOTULINUMTOXINA
     Indication: Skin wrinkling
  3. DYSPORT [Suspect]
     Active Substance: ABOBOTULINUMTOXINA
     Indication: Skin wrinkling
  4. DYSPORT [Suspect]
     Active Substance: ABOBOTULINUMTOXINA
     Indication: Off label use

REACTIONS (2)
  - Off label use [Unknown]
  - Drug ineffective [Unknown]

NARRATIVE: CASE EVENT DATE: 20240818
